FAERS Safety Report 11465567 (Version 1)
Quarter: 2015Q3

REPORT INFORMATION
  Report Type: Spontaneous
  Country: BR (occurrence: BR)
  Receive Date: 20150907
  Receipt Date: 20150907
  Transmission Date: 20151125
  Serious: Yes (Hospitalization)
  Sender: FDA-Public Use
  Company Number: BR-ROCHE-1630785

PATIENT
  Sex: Female
  Weight: 50 kg

DRUGS (3)
  1. CARBOPLATIN. [Concomitant]
     Active Substance: CARBOPLATIN
     Route: 065
     Dates: start: 20150901
  2. DOCETAXEL. [Concomitant]
     Active Substance: DOCETAXEL
     Route: 065
     Dates: start: 20150901
  3. HERCEPTIN [Suspect]
     Active Substance: TRASTUZUMAB
     Indication: BREAST CANCER METASTATIC
     Route: 065
     Dates: start: 2014

REACTIONS (1)
  - Breast mass [Unknown]
